FAERS Safety Report 8516836-1 (Version None)
Quarter: 2012Q3

REPORT INFORMATION
  Report Type: 
  Country: None (occurrence: None)
  Receive Date: 20120706
  Receipt Date: 20120620
  Transmission Date: 20120928
  Serious: Yes (Hospitalization)
  Sender: FDA-Public Use
  Company Number: 2012-247

PATIENT
  Age: 50 Year
  Sex: Male

DRUGS (1)
  1. PRIALT [Suspect]
     Dosage: UNK UG, ONCE/HOUR, INTRATHECAL
     Route: 037
     Dates: start: 20120315, end: 20120501

REACTIONS (3)
  - DECREASED APPETITE [None]
  - DRUG HYPERSENSITIVITY [None]
  - HEADACHE [None]
